FAERS Safety Report 4332414-2 (Version None)
Quarter: 2004Q2

REPORT INFORMATION
  Report Type: 
  Country: None (occurrence: None)
  Receive Date: 20040401
  Receipt Date: 20040322
  Transmission Date: 20050107
  Serious: Yes (Hospitalization, Disabling)
  Sender: FDA-Public Use
  Company Number: 04P-167-0254421-00

PATIENT
  Age: 44 Year
  Sex: Female
  Weight: 150 kg

DRUGS (2)
  1. MERIDIA [Suspect]
     Indication: OBESITY
     Dosage: 15 MG, 1 IN 1 D, PER ORAL
     Route: 048
     Dates: start: 20040226, end: 20040228
  2. BECLOMETHASONE DIPROPIONATE [Concomitant]

REACTIONS (1)
  - HAEMATEMESIS [None]
